FAERS Safety Report 10982598 (Version 1)
Quarter: 2015Q2

REPORT INFORMATION
  Report Type: Spontaneous
  Country: US (occurrence: US)
  Receive Date: 20150403
  Receipt Date: 20150403
  Transmission Date: 20150821
  Serious: No
  Sender: FDA-Public Use
  Company Number: US-BIOGENIDEC-2015BI023000

PATIENT
  Age: 37 Year
  Sex: Female

DRUGS (1)
  1. TYSABRI [Suspect]
     Active Substance: NATALIZUMAB
     Indication: MULTIPLE SCLEROSIS
     Route: 042
     Dates: start: 20131113

REACTIONS (6)
  - Head injury [Unknown]
  - Fall [Unknown]
  - Disorientation [Unknown]
  - Clavicle fracture [Not Recovered/Not Resolved]
  - Back injury [Unknown]
  - Injury [Unknown]

NARRATIVE: CASE EVENT DATE: 20150217
